FAERS Safety Report 9787491 (Version 1)
Quarter: 2013Q4

REPORT INFORMATION
  Report Type: Spontaneous
  Country: US (occurrence: None)
  Receive Date: 20131224
  Receipt Date: 20131224
  Transmission Date: 20140711
  Serious: Yes (Other)
  Sender: FDA-Public Use
  Company Number: 2013-US-004554

PATIENT
  Age: 13 Year
  Sex: Female

DRUGS (1)
  1. XYREM (SODIUM OXYBATE) ORAL SOLUTION, 500 MG/ML [Suspect]
     Indication: NARCOLEPSY
     Route: 048
     Dates: start: 201309, end: 2013

REACTIONS (6)
  - Snoring [None]
  - Sleep apnoea syndrome [None]
  - Dyskinesia [None]
  - Crying [None]
  - Respiratory arrest [None]
  - Unresponsive to stimuli [None]
